FAERS Safety Report 10968212 (Version 1)
Quarter: 2015Q1

REPORT INFORMATION
  Report Type: Spontaneous
  Country: US (occurrence: US)
  Receive Date: 20150330
  Receipt Date: 20150330
  Transmission Date: 20150721
  Serious: No
  Sender: FDA-Public Use
  Company Number: US-LUNDBECK-DKLU1109448

PATIENT
  Age: 60 Year
  Sex: Female

DRUGS (2)
  1. NORTHERA [Suspect]
     Active Substance: DROXIDOPA
     Indication: MULTIPLE SYSTEM ATROPHY
     Route: 065
     Dates: start: 20150224
  2. NORTHERA [Suspect]
     Active Substance: DROXIDOPA
     Indication: ORTHOSTATIC HYPOTENSION

REACTIONS (3)
  - Vomiting [Unknown]
  - Headache [Unknown]
  - Nausea [Unknown]

NARRATIVE: CASE EVENT DATE: 20150224
